FAERS Safety Report 21600202 (Version 9)
Quarter: 2023Q4

REPORT INFORMATION
  Report Type: Spontaneous
  Country: PT (occurrence: PT)
  Receive Date: 20221116
  Receipt Date: 20231228
  Transmission Date: 20240109
  Serious: Yes (Life-Threatening, Hospitalization, Congenital Anomaly, Other)
  Sender: FDA-Public Use
  Company Number: PT-MYLANLABS-2022M1118627

PATIENT
  Age: 49 Year
  Sex: Male

DRUGS (14)
  1. FENTANYL [Interacting]
     Active Substance: FENTANYL\FENTANYL CITRATE
     Indication: Anaesthesia procedure
     Dosage: UNK (UNDER INTRAVENOUS ANESTHESIA INCLUDING FENTANYL (FTY) USE)
     Route: 040
  2. FENTANYL [Interacting]
     Active Substance: FENTANYL\FENTANYL CITRATE
     Indication: Spinal fusion surgery
     Dosage: UNK (UNDER INTRAVENOUS ANESTHESIA INCLUDING FENTANYL (FTY) USE)
     Route: 041
  3. FENTANYL [Interacting]
     Active Substance: FENTANYL\FENTANYL CITRATE
     Indication: Anaesthesia
  4. FENTANYL [Interacting]
     Active Substance: FENTANYL\FENTANYL CITRATE
     Indication: Attention deficit hyperactivity disorder
  5. ONDANSETRON [Interacting]
     Active Substance: ONDANSETRON
     Indication: General anaesthesia
     Dosage: UNK
     Route: 065
  6. ONDANSETRON [Interacting]
     Active Substance: ONDANSETRON
     Indication: Spinal fusion surgery
  7. TRAZODONE [Interacting]
     Active Substance: TRAZODONE HYDROCHLORIDE
     Indication: Depression
     Dosage: UNK
     Route: 065
  8. TRAZODONE [Interacting]
     Active Substance: TRAZODONE HYDROCHLORIDE
     Indication: Attention deficit hyperactivity disorder
  9. TRAZODONE [Interacting]
     Active Substance: TRAZODONE HYDROCHLORIDE
     Indication: Spinal fusion surgery
  10. TRAZODONE [Interacting]
     Active Substance: TRAZODONE HYDROCHLORIDE
     Indication: General anaesthesia
  11. ONDANSETRON [Suspect]
     Active Substance: ONDANSETRON
     Indication: General anaesthesia
     Dosage: UNK
     Route: 065
  12. ONDANSETRON [Suspect]
     Active Substance: ONDANSETRON
     Indication: Spinal fusion surgery
  13. METHYLPHENIDATE [Interacting]
     Active Substance: METHYLPHENIDATE
     Indication: Depression
     Dosage: UNK
     Route: 065
  14. METHYLPHENIDATE [Interacting]
     Active Substance: METHYLPHENIDATE
     Indication: Attention deficit hyperactivity disorder

REACTIONS (11)
  - Binocular eye movement disorder [Recovered/Resolved]
  - Agitation [Recovered/Resolved]
  - Akathisia [Recovered/Resolved]
  - Hyperkinesia [Recovered/Resolved]
  - Hypertension [Recovered/Resolved]
  - Hyperthermia [Recovered/Resolved]
  - Mental status changes [Recovered/Resolved]
  - Tachycardia [Recovered/Resolved]
  - Serotonin syndrome [Recovered/Resolved]
  - Unresponsive to stimuli [Recovered/Resolved]
  - Drug interaction [Recovered/Resolved]
